FAERS Safety Report 7643354-5 (Version None)
Quarter: 2011Q3

REPORT INFORMATION
  Report Type: 
  Country: None (occurrence: None)
  Receive Date: 20110729
  Receipt Date: 20110725
  Transmission Date: 20111222
  Serious: No
  Sender: FDA-Public Use
  Company Number: US-BIOGENIDEC-2011BI027917

PATIENT
  Sex: Male

DRUGS (3)
  1. TYSABRI [Suspect]
     Indication: MULTIPLE SCLEROSIS
     Route: 042
     Dates: start: 20110209
  2. AVONEX [Concomitant]
     Indication: MULTIPLE SCLEROSIS
     Route: 030
     Dates: start: 20001229
  3. AVONEX [Concomitant]
     Route: 030
     Dates: start: 20031101

REACTIONS (4)
  - DIZZINESS [None]
  - MEMORY IMPAIRMENT [None]
  - GAIT DISTURBANCE [None]
  - MULTIPLE SCLEROSIS [None]
